FAERS Safety Report 22272580 (Version 1)
Quarter: 2023Q2

REPORT INFORMATION
  Report Type: Spontaneous
  Country: GB (occurrence: GB)
  Receive Date: 20230502
  Receipt Date: 20230502
  Transmission Date: 20230722
  Serious: Yes (Hospitalization, Other)
  Sender: FDA-Public Use
  Company Number: GB-BoehringerIngelheim-2023-BI-234198

PATIENT
  Age: 84 Year
  Sex: Female

DRUGS (1)
  1. NINTEDANIB [Suspect]
     Active Substance: NINTEDANIB
     Indication: Idiopathic pulmonary fibrosis

REACTIONS (4)
  - Idiopathic pulmonary fibrosis [Recovering/Resolving]
  - Pneumomediastinum [Recovered/Resolved]
  - Respiratory alkalosis [Recovering/Resolving]
  - Platypnoea [Recovering/Resolving]
